FAERS Safety Report 7486428-4 (Version None)
Quarter: 2011Q2

REPORT INFORMATION
  Report Type: 
  Country: None (occurrence: None)
  Receive Date: 20110516
  Receipt Date: 20110516
  Transmission Date: 20111010
  Serious: Yes (Other)
  Sender: FDA-Public Use
  Company Number: None

PATIENT
  Age: 13 Year
  Sex: Female
  Weight: 70.7611 kg

DRUGS (1)
  1. LEXAPRO [Suspect]
     Indication: SOCIAL PHOBIA
     Dosage: 10 MG QD PO
     Route: 048
     Dates: start: 20040305, end: 20110513

REACTIONS (2)
  - SUICIDAL IDEATION [None]
  - DISEASE RECURRENCE [None]
